FAERS Safety Report 5218568-4 (Version None)
Quarter: 2007Q1

REPORT INFORMATION
  Report Type: 
  Country: None (occurrence: None)
  Receive Date: 20070122
  Receipt Date: 20070115
  Transmission Date: 20070707
  Serious: Yes (Death)
  Sender: FDA-Public Use
  Company Number: 2006SP008984

PATIENT
  Age: 64 Year
  Sex: Male
  Weight: 51 kg

DRUGS (3)
  1. TEMODAL [Suspect]
     Indication: GLIOBLASTOMA MULTIFORME
     Dosage: 240 MG;QD; PO;  320 MG; QD; PO
     Route: 048
     Dates: start: 20061030, end: 20061103
  2. TEMODAL [Suspect]
     Indication: GLIOBLASTOMA MULTIFORME
     Dosage: 240 MG;QD; PO;  320 MG; QD; PO
     Route: 048
     Dates: start: 20061128, end: 20061202
  3. HORMONES NOS (CON.) [Concomitant]

REACTIONS (1)
  - PNEUMOCYSTIS JIROVECI PNEUMONIA [None]
